FAERS Safety Report 18563732 (Version 1)
Quarter: 2020Q4

REPORT INFORMATION
  Report Type: Spontaneous
  Country: US (occurrence: US)
  Receive Date: 20201201
  Receipt Date: 20201201
  Transmission Date: 20210114
  Serious: Yes (Death)
  Sender: FDA-Public Use
  Company Number: US-BAYER-2020-252634

PATIENT
  Age: 69 Year
  Sex: Male

DRUGS (1)
  1. STIVARGA [Suspect]
     Active Substance: REGORAFENIB
     Dosage: 40 MG, QD FOR 21 DAYS THEN 1 WEEK STOP
     Dates: start: 202008

REACTIONS (3)
  - Off label use [None]
  - Adverse drug reaction [None]
  - Death [Fatal]

NARRATIVE: CASE EVENT DATE: 202008
